FAERS Safety Report 4746946-6 (Version None)
Quarter: 2005Q3

REPORT INFORMATION
  Report Type: 
  Country: None (occurrence: None)
  Receive Date: 20050817
  Receipt Date: 20050805
  Transmission Date: 20060218
  Serious: Yes (Life-Threatening)
  Sender: FDA-Public Use
  Company Number: NL-SANOFI-SYNTHELABO-A01200505414

PATIENT
  Sex: Female
  Weight: 74.1 kg

DRUGS (4)
  1. ELOXATIN [Suspect]
     Indication: COLORECTAL CANCER
     Dosage: UNKNOWN
     Route: 041
     Dates: start: 20050802, end: 20050802
  2. THYRAX [Concomitant]
     Indication: DRUG USE FOR UNKNOWN INDICATION
     Route: 065
  3. MAGNESIUM SULFATE [Concomitant]
     Indication: PARAESTHESIA
     Dosage: 10 ML BEFORE AND AFTER ELOXATIN THERAPY
     Route: 065
  4. CALCIUM-SANDOZ [Concomitant]
     Indication: PARAESTHESIA
     Dosage: 10 ML BEFORE AND AFTER ELOXATIN THERAPY
     Route: 065

REACTIONS (11)
  - AMNESIA [None]
  - EYE ROLLING [None]
  - FOAMING AT MOUTH [None]
  - INCONTINENCE [None]
  - INFUSION RELATED REACTION [None]
  - PARAESTHESIA [None]
  - PULSE ABSENT [None]
  - RESPIRATORY ARREST [None]
  - SOMNOLENCE [None]
  - VASOSPASM [None]
  - VISUAL DISTURBANCE [None]
